FAERS Safety Report 16409290 (Version 1)
Quarter: 2019Q3

REPORT INFORMATION
  Report Type: Spontaneous
  Country: US (occurrence: US)
  Receive Date: 20190609
  Receipt Date: 20190609
  Transmission Date: 20191004
  Serious: Yes (Life-Threatening, Hospitalization, Disabling, Other)
  Sender: FDA-Public Use
  Company Number: None

PATIENT
  Age: 63 Year
  Sex: Male
  Weight: 78.93 kg

DRUGS (4)
  1. VAL SARTAN [Suspect]
     Active Substance: VALSARTAN
  2. VITAMINS [Concomitant]
     Active Substance: VITAMINS
  3. Q10 [Concomitant]
  4. LISINOPRIL. [Concomitant]
     Active Substance: LISINOPRIL

REACTIONS (5)
  - Blood disorder [None]
  - Cardiomegaly [None]
  - Neoplasm malignant [None]
  - Liver injury [None]
  - Gastrointestinal disorder [None]

NARRATIVE: CASE EVENT DATE: 20180919
